FAERS Safety Report 9591088 (Version 1)
Quarter: 2013Q4

REPORT INFORMATION
  Report Type: Spontaneous
  Country: US (occurrence: US)
  Receive Date: 20131003
  Receipt Date: 20131003
  Transmission Date: 20140711
  Serious: No
  Sender: FDA-Public Use
  Company Number: US-AMGEN-USASP2012079028

PATIENT
  Age: 36 Year
  Sex: Female
  Weight: 56.69 kg

DRUGS (6)
  1. ENBREL [Suspect]
     Indication: PSORIASIS
     Dosage: 50 MG/ML, WEEKLY
     Route: 058
  2. ENBREL [Suspect]
  3. ALLEGRA ALLERGY [Concomitant]
     Dosage: 180 MG, UNK
  4. HALOBETASOL PROPIONATE [Concomitant]
     Dosage: 0.05%
  5. PATANOL [Concomitant]
     Dosage: 0.1%
  6. NUVARING [Concomitant]
     Dosage: UNK

REACTIONS (6)
  - Injection site reaction [Recovering/Resolving]
  - Injection site swelling [Recovering/Resolving]
  - Injection site erythema [Recovering/Resolving]
  - Injection site pruritus [Recovering/Resolving]
  - Injection site warmth [Recovering/Resolving]
  - Injection site urticaria [Recovering/Resolving]
